FAERS Safety Report 4959971-7 (Version None)
Quarter: 2006Q1

REPORT INFORMATION
  Report Type: 
  Country: None (occurrence: None)
  Receive Date: 20060327
  Receipt Date: 20060309
  Transmission Date: 20060701
  Serious: Yes (Other)
  Sender: FDA-Public Use
  Company Number: S06-ESP-00989-01

PATIENT
  Age: 84 Year
  Sex: Female
  Weight: 53 kg

DRUGS (7)
  1. MEMANTINE HCL [Suspect]
     Indication: DEMENTIA
     Dates: start: 20050204
  2. NPH INSULIN [Concomitant]
  3. INSULIN HUMAN [Concomitant]
  4. FEMARA [Concomitant]
  5. HYDROCHLOROTHIAZIDE [Concomitant]
  6. OLMESARTAN MEDOXOMIL [Concomitant]
  7. ALDACTONE [Concomitant]

REACTIONS (2)
  - FALL [None]
  - HYPERTENSIVE CRISIS [None]
